FAERS Safety Report 8027875-1 (Version None)
Quarter: 2012Q1

REPORT INFORMATION
  Report Type: 
  Country: None (occurrence: None)
  Receive Date: 20120106
  Receipt Date: 20120102
  Transmission Date: 20120608
  Serious: Yes (Other)
  Sender: FDA-Public Use
  Company Number: DE-JNJFOC-20111206084

PATIENT
  Sex: Male

DRUGS (10)
  1. VENOFER [Concomitant]
     Dosage: EVERY TWO TO THREE MONTHS
     Route: 042
  2. DEXAMETHASONE [Concomitant]
     Route: 065
  3. AZATHIOPRINE [Concomitant]
     Route: 065
     Dates: start: 20000101, end: 20110201
  4. REMICADE [Suspect]
     Route: 042
  5. REMICADE [Suspect]
     Indication: CROHN'S DISEASE
     Route: 042
     Dates: start: 20111214
  6. REMICADE [Suspect]
     Route: 042
     Dates: start: 20091005
  7. FENISTIL [Concomitant]
     Route: 042
  8. VITAMIN D [Concomitant]
     Indication: HYPERPARATHYROIDISM
     Route: 065
  9. VITAMIN B12 [Concomitant]
     Indication: VITAMIN B12 DEFICIENCY
     Dosage: EVERY FOUR TO SIX WEEKS
     Route: 030
  10. CORTICOSTEROIDS [Concomitant]
     Route: 065
     Dates: start: 20000101, end: 20110201

REACTIONS (14)
  - CATARACT [None]
  - ACNE [None]
  - BRONCHITIS [None]
  - SLEEP DISORDER [None]
  - THYROIDITIS SUBACUTE [None]
  - MYOPIA [None]
  - LORDOSIS [None]
  - SURGERY [None]
  - COUGH [None]
  - ASTIGMATISM [None]
  - LYMPHOCYTOSIS [None]
  - MELANOCYTIC NAEVUS [None]
  - GALLBLADDER POLYP [None]
  - HEPATIC STEATOSIS [None]
